FAERS Safety Report 7474610-1 (Version None)
Quarter: 2011Q2

REPORT INFORMATION
  Report Type: 
  Country: None (occurrence: None)
  Receive Date: 20110503
  Receipt Date: 20110419
  Transmission Date: 20111010
  Serious: Yes (Hospitalization)
  Sender: FDA-Public Use
  Company Number: 1000020371

PATIENT
  Age: 70 Year
  Sex: Female

DRUGS (3)
  1. TANAKAN (GINKGO BILOBA EXTRACT) [Concomitant]
  2. PRAVASTATIN SODIUM [Concomitant]
  3. NEBIVOLOL HCL [Suspect]
     Indication: HYPERTENSION
     Dosage: 5 MG (5 MG, 1 IN 1 D), ORAL
     Route: 048
     Dates: start: 20100401, end: 20101201

REACTIONS (1)
  - HALLUCINATION, VISUAL [None]
